FAERS Safety Report 7508322-2 (Version None)
Quarter: 2011Q2

REPORT INFORMATION
  Report Type: 
  Country: None (occurrence: None)
  Receive Date: 20110421
  Receipt Date: 20110414
  Transmission Date: 20111010
  Serious: Yes (Other)
  Sender: FDA-Public Use
  Company Number: SPV1-2010-01590

PATIENT
  Sex: Male

DRUGS (1)
  1. VYVANSE [Suspect]
     Dosage: DRUG USE FOR UNKNOWN INDICATION (DRUG USE FOR UNKNOWN INDICATION)

REACTIONS (1)
  - CONVULSION [None]
